FAERS Safety Report 7735379-6 (Version None)
Quarter: 2011Q3

REPORT INFORMATION
  Report Type: 
  Country: None (occurrence: None)
  Receive Date: 20110907
  Receipt Date: 20110902
  Transmission Date: 20111222
  Serious: Yes (Hospitalization)
  Sender: FDA-Public Use
  Company Number: IT-SANOFI-AVENTIS-2011SA056611

PATIENT
  Age: 93 Year
  Sex: Female

DRUGS (9)
  1. LANTUS [Suspect]
     Indication: DIABETES MELLITUS
     Route: 058
     Dates: start: 20110101
  2. ALLOPURINOL [Concomitant]
     Route: 048
  3. OMEPRAZOLE [Concomitant]
     Route: 065
  4. LASIX [Concomitant]
     Route: 065
  5. INSULIN HUMAN [Suspect]
     Indication: DIABETES MELLITUS
     Route: 058
     Dates: start: 20110101
  6. LORAZEPAM [Concomitant]
     Route: 048
  7. NITROGLYCERIN [Concomitant]
     Route: 062
  8. ASPIRIN [Concomitant]
     Route: 048
  9. CLOPIXOL [Concomitant]
     Route: 065

REACTIONS (2)
  - HYPOGLYCAEMIA [None]
  - CARDIAC FAILURE [None]
